FAERS Safety Report 4431383-4 (Version None)
Quarter: 2004Q3

REPORT INFORMATION
  Report Type: 
  Country: None (occurrence: None)
  Receive Date: 20040824
  Receipt Date: 20040701
  Transmission Date: 20050211
  Serious: Yes (Disabling)
  Sender: FDA-Public Use
  Company Number: US-ROCHE-373293

PATIENT
  Age: 23 Year
  Sex: Female
  Weight: 55.3 kg

DRUGS (1)
  1. ACCUTANE [Suspect]
     Route: 048
     Dates: start: 20031205, end: 20040415

REACTIONS (8)
  - ALOPECIA [None]
  - FEELING JITTERY [None]
  - HEADACHE [None]
  - HYPOACUSIS [None]
  - PARAESTHESIA [None]
  - PITUITARY ENLARGEMENT [None]
  - VISION BLURRED [None]
  - VISUAL DISTURBANCE [None]
